FAERS Safety Report 6271155-1 (Version None)
Quarter: 2009Q3

REPORT INFORMATION
  Report Type: 
  Country: None (occurrence: None)
  Receive Date: 20090717
  Receipt Date: 20090715
  Transmission Date: 20100115
  Serious: Yes (Other)
  Sender: FDA-Public Use
  Company Number: US-RB-017969-09

PATIENT
  Sex: Female
  Weight: 89.1 kg

DRUGS (5)
  1. SUBOXONE [Suspect]
     Route: 060
     Dates: start: 20081201, end: 20090301
  2. SUBOXONE [Suspect]
     Route: 060
     Dates: start: 20090427, end: 20090510
  3. SUBOXONE [Suspect]
     Route: 060
     Dates: start: 20090511
  4. SUBOXONE [Suspect]
     Route: 060
     Dates: start: 20081112, end: 20081130
  5. PROZAC [Concomitant]
     Indication: DEPRESSION
     Dates: start: 20090427

REACTIONS (2)
  - DRUG EXPOSURE DURING PREGNANCY [None]
  - SUICIDAL IDEATION [None]
